FAERS Safety Report 7069735-9 (Version None)
Quarter: 2010Q4

REPORT INFORMATION
  Report Type: 
  Country: None (occurrence: None)
  Receive Date: 20101028
  Receipt Date: 20100521
  Transmission Date: 20110411
  Serious: No
  Sender: FDA-Public Use
  Company Number: US-WYE-H15302210

PATIENT
  Sex: Female
  Weight: 90.35 kg

DRUGS (5)
  1. EFFEXOR [Suspect]
     Indication: ANXIETY
     Dosage: UNKNOWN STARTING DOSE
     Route: 048
     Dates: start: 20100301, end: 20100301
  2. EFFEXOR [Suspect]
     Indication: DEPRESSION
     Dosage: 150 MG IN AM, 75 MG IN PM
     Route: 048
     Dates: start: 20100301, end: 20100501
  3. EFFEXOR [Suspect]
     Indication: PANIC DISORDER
     Route: 048
     Dates: start: 20100501, end: 20100518
  4. ATENOLOL [Concomitant]
  5. DIOVAN [Concomitant]

REACTIONS (9)
  - ABNORMAL DREAMS [None]
  - ASTHENIA [None]
  - BONE PAIN [None]
  - CONDITION AGGRAVATED [None]
  - DRUG WITHDRAWAL SYNDROME [None]
  - HEADACHE [None]
  - HYPERTENSION [None]
  - NAUSEA [None]
  - TINNITUS [None]
